FAERS Safety Report 9854112 (Version 1)
Quarter: 2014Q1

REPORT INFORMATION
  Report Type: Report from Study
  Country: US (occurrence: US)
  Receive Date: 20140129
  Receipt Date: 20140129
  Transmission Date: 20141002
  Serious: Yes (Other)
  Sender: FDA-Public Use
  Company Number: US-CELGENEUS-163-C4047-14013724

PATIENT
  Age: 73 Year
  Sex: Male
  Weight: 168 kg

DRUGS (3)
  1. CC-4047 [Suspect]
     Indication: PLASMA CELL MYELOMA
     Route: 048
  2. CC-4047 [Suspect]
     Dosage: DECREASED DOSE
     Route: 048
  3. DEXAMETHASONE [Concomitant]
     Indication: PRODUCT USED FOR UNKNOWN INDICATION
     Route: 065

REACTIONS (2)
  - Toxicity to various agents [Unknown]
  - Unevaluable event [Unknown]
